FAERS Safety Report 24979148 (Version 1)
Quarter: 2025Q1

REPORT INFORMATION
  Report Type: Spontaneous
  Country: US (occurrence: US)
  Receive Date: 20250218
  Receipt Date: 20250218
  Transmission Date: 20250409
  Serious: Yes (Other)
  Sender: BRISTOL-MYERS SQUIBB COMPANY
  Company Number: US-BRISTOL-MYERS SQUIBB COMPANY-2025-022716

PATIENT
  Age: 76 Year
  Sex: Male
  Weight: 81.19 kg

DRUGS (9)
  1. REVLIMID [Suspect]
     Active Substance: LENALIDOMIDE
     Indication: Plasma cell myeloma
     Dosage: 3 WKS ON / 1 WK OFF
     Route: 048
     Dates: start: 20241201
  2. XARELTO [Concomitant]
     Active Substance: RIVAROXABAN
  3. EZETIMIBE [Concomitant]
     Active Substance: EZETIMIBE
  4. DARZALEX [Concomitant]
     Active Substance: DARATUMUMAB
     Route: 042
  5. INDERAL LA [Concomitant]
     Active Substance: PROPRANOLOL HYDROCHLORIDE
  6. VELCADE [Concomitant]
     Active Substance: BORTEZOMIB
  7. DEXAMETHASONE [Concomitant]
     Active Substance: DEXAMETHASONE
  8. TAMSULOSIN [Concomitant]
     Active Substance: TAMSULOSIN
  9. ACETAMINOPHEN\HYDROCODONE [Concomitant]
     Active Substance: ACETAMINOPHEN\HYDROCODONE

REACTIONS (1)
  - Central nervous system lesion [Unknown]
